FAERS Safety Report 21002201 (Version 2)
Quarter: 2023Q1

REPORT INFORMATION
  Report Type: Spontaneous
  Country: FR (occurrence: FR)
  Receive Date: 20220624
  Receipt Date: 20230331
  Transmission Date: 20230418
  Serious: Yes (Hospitalization, Other)
  Sender: FDA-Public Use
  Company Number: None

PATIENT
  Age: 57 Year
  Sex: Male
  Weight: 93 kg

DRUGS (9)
  1. DULOXETINE HYDROCHLORIDE [Suspect]
     Active Substance: DULOXETINE HYDROCHLORIDE
     Indication: Product used for unknown indication
     Dosage: 60 MG IN THE MORNING, 30 MG IN THE EVENING
     Route: 048
  2. FENOFIBRATE [Suspect]
     Active Substance: FENOFIBRATE
     Indication: Hyperlipidaemia
     Dosage: DURATION 5YEARS
     Route: 048
     Dates: end: 202205
  3. PREDNISONE [Concomitant]
     Active Substance: PREDNISONE
     Indication: Product used for unknown indication
     Dosage: CORTICOSTEROID THERAPY STARTED ON 04/14/2022 WITH 80 MG, WITH A DECREASE EVERY 10 DAYS DOWN TO 17.5
     Route: 048
     Dates: start: 20220414
  4. LAMOTRIGINE [Concomitant]
     Active Substance: LAMOTRIGINE
     Indication: Product used for unknown indication
     Dosage: 125MG, FREQUENCY TIME 12HRS
     Route: 048
  5. SYMBICORT [Concomitant]
     Active Substance: BUDESONIDE\FORMOTEROL FUMARATE DIHYDRATE
     Indication: Product used for unknown indication
     Dosage: 10 DOSAGE FORMS DAILY; 5 PUFFS MORNING AND EVENING, SYMBICORT TURBUHALER 400/12 MICROGRAMS/DOSE, POW
     Route: 048
  6. BACTRIM [Concomitant]
     Active Substance: SULFAMETHOXAZOLE\TRIMETHOPRIM
     Indication: Product used for unknown indication
     Dosage: BACTRIM 80 MG 1 TAB ON MONDAY, WEDNESDAY AND FRIDAY, BACTRIM ADULTS, FREQUENCY TIME 2DAYS
     Route: 048
  7. SPIRIVA RESPIMAT [Concomitant]
     Active Substance: TIOTROPIUM BROMIDE
     Indication: Product used for unknown indication
     Dosage: 2 DOSAGE FORMS DAILY; 2 PUFFS IN THE MORNING, SPIRIVA RESPIMAT 2.5 MICROGRAMS/DOSE, SOLUTION FOR INH
     Route: 048
  8. AZATHIOPRINE SODIUM [Concomitant]
     Active Substance: AZATHIOPRINE SODIUM
     Indication: Eosinophilic granulomatosis with polyangiitis
     Dosage: BACKGROUND TREATMENT (DOSE UNEXPECTEDLY LOWERED TO 50 MG/D IN JANUARY 2022), 150MG, FREQUENCY TIME 2
     Route: 048
  9. OLANZAPINE [Concomitant]
     Active Substance: OLANZAPINE
     Indication: Product used for unknown indication
     Dosage: 20 MILLIGRAM DAILY; 20MG IN THE EVENING
     Route: 048

REACTIONS (1)
  - Interstitial lung disease [Recovering/Resolving]

NARRATIVE: CASE EVENT DATE: 20200101
